FAERS Safety Report 12248880 (Version 1)
Quarter: 2016Q2

REPORT INFORMATION
  Report Type: Spontaneous
  Country: US (occurrence: None)
  Receive Date: 20160407
  Receipt Date: 20160407
  Transmission Date: 20160815
  Serious: Yes (Other)
  Sender: FDA-Public Use
  Company Number: None

PATIENT
  Age: 62 Year
  Sex: Male
  Weight: 86.18 kg

DRUGS (3)
  1. FENTANYL. [Concomitant]
     Active Substance: FENTANYL
  2. GABEPENTIN [Concomitant]
  3. OXYCODONE, 10 MG [Suspect]
     Active Substance: OXYCODONE
     Indication: PAIN
     Dosage: 90 TABLETS THREE TIMES A DAY
     Route: 048

REACTIONS (2)
  - Drug effect decreased [None]
  - Product quality issue [None]

NARRATIVE: CASE EVENT DATE: 20160324
